FAERS Safety Report 14481969 (Version 1)
Quarter: 2018Q1

REPORT INFORMATION
  Report Type: Spontaneous
  Country: US (occurrence: US)
  Receive Date: 20180202
  Receipt Date: 20180202
  Transmission Date: 20180509
  Serious: Yes (Other)
  Sender: FDA-Public Use
  Company Number: None

PATIENT
  Sex: Male
  Weight: 76.5 kg

DRUGS (8)
  1. ALBUTERAL [Concomitant]
     Active Substance: ALBUTEROL
  2. DIVOPROLEX [Concomitant]
  3. ASMANEX [Concomitant]
     Active Substance: MOMETASONE FUROATE
  4. ZYPREZA [Concomitant]
  5. RISPERIDONE. [Suspect]
     Active Substance: RISPERIDONE
     Indication: SCHIZOPHRENIA
     Dosage: ?          QUANTITY:30 TABLET(S);?
     Route: 048
  6. GABAPENTIN. [Concomitant]
     Active Substance: GABAPENTIN
  7. NAPROXEN. [Concomitant]
     Active Substance: NAPROXEN
  8. COGENTIN [Concomitant]
     Active Substance: BENZTROPINE MESYLATE

REACTIONS (4)
  - Tooth fracture [None]
  - Bruxism [None]
  - Toothache [None]
  - Gingival disorder [None]

NARRATIVE: CASE EVENT DATE: 20160715
